FAERS Safety Report 5078195-9 (Version None)
Quarter: 2006Q3

REPORT INFORMATION
  Report Type: 
  Country: None (occurrence: None)
  Receive Date: 20060725
  Receipt Date: 20050526
  Transmission Date: 20061208
  Serious: Yes (Hospitalization, Other)
  Sender: FDA-Public Use
  Company Number: 05-000374

PATIENT
  Age: 66 Year
  Sex: Female

DRUGS (4)
  1. FEMHRT [Suspect]
     Indication: MENOPAUSAL SYMPTOMS
     Dosage: ORAL
     Route: 048
  2. PREMARIN [Suspect]
     Indication: MENOPAUSAL SYMPTOMS
     Dosage: ORAL
     Route: 048
  3. PROVERA [Suspect]
     Indication: MENOPAUSAL SYMPTOMS
     Dosage: ORAL
     Route: 048
  4. PREMPRO [Suspect]
     Indication: MENOPAUSAL SYMPTOMS
     Dosage: ORAL
     Route: 048

REACTIONS (2)
  - BREAST CANCER [None]
  - BREAST CANCER IN SITU [None]
